FAERS Safety Report 10534320 (Version 1)
Quarter: 2014Q4

REPORT INFORMATION
  Report Type: Spontaneous
  Country: US (occurrence: None)
  Receive Date: 20141021
  Receipt Date: 20141021
  Transmission Date: 20150529
  Serious: No
  Sender: FDA-Public Use
  Company Number: None

PATIENT
  Age: 70 Year
  Sex: Female

DRUGS (7)
  1. WARFARIN [Concomitant]
     Active Substance: WARFARIN
  2. ALENDRONATE [Concomitant]
     Active Substance: ALENDRONATE SODIUM
  3. AFINITOR [Suspect]
     Active Substance: EVEROLIMUS
     Indication: BREAST CANCER
     Dosage: ONE PILL
     Route: 048
     Dates: start: 20130904, end: 20140303
  4. FUROSEMIDE. [Concomitant]
     Active Substance: FUROSEMIDE
  5. EXEMESTANE. [Concomitant]
     Active Substance: EXEMESTANE
  6. DEXAMETHASONE. [Concomitant]
     Active Substance: DEXAMETHASONE
  7. METOPROLOL TARTRATE. [Concomitant]
     Active Substance: METOPROLOL TARTRATE

REACTIONS (4)
  - No therapeutic response [None]
  - Oedema peripheral [None]
  - Blood pressure increased [None]
  - Peripheral swelling [None]

NARRATIVE: CASE EVENT DATE: 20131226
